FAERS Safety Report 16686735 (Version 3)
Quarter: 2019Q3

REPORT INFORMATION
  Report Type: Spontaneous
  Country: FR (occurrence: FR)
  Receive Date: 20190809
  Receipt Date: 20190927
  Transmission Date: 20191004
  Serious: Yes (Other)
  Sender: FDA-Public Use
  Company Number: FR-REGENERON PHARMACEUTICALS, INC.-2019-47146

PATIENT

DRUGS (1)
  1. EYLEA [Suspect]
     Active Substance: AFLIBERCEPT
     Indication: AGE-RELATED MACULAR DEGENERATION
     Dosage: UNK
     Dates: start: 2016

REACTIONS (1)
  - Chronic myeloid leukaemia [Unknown]
